FAERS Safety Report 6754910-0 (Version None)
Quarter: 2010Q2

REPORT INFORMATION
  Report Type: 
  Country: None (occurrence: None)
  Receive Date: 20100603
  Receipt Date: 20100525
  Transmission Date: 20101027
  Serious: Yes (Other)
  Sender: FDA-Public Use
  Company Number: US-AMGEN-QUU414245

PATIENT
  Sex: Female

DRUGS (1)
  1. EPOGEN [Suspect]
     Indication: DIALYSIS
     Route: 042

REACTIONS (2)
  - HAEMOGLOBIN DECREASED [None]
  - THERAPEUTIC RESPONSE DECREASED [None]
